FAERS Safety Report 6573506-7 (Version None)
Quarter: 2010Q1

REPORT INFORMATION
  Report Type: 
  Country: None (occurrence: None)
  Receive Date: 20100208
  Receipt Date: 20100129
  Transmission Date: 20100710
  Serious: Yes (Hospitalization, Other)
  Sender: FDA-Public Use
  Company Number: US-ABBOTT-09P-163-0587696-00

PATIENT
  Sex: Female

DRUGS (7)
  1. DEPAKOTE [Suspect]
     Indication: CONVULSION
  2. DEPAKOTE [Suspect]
     Indication: RELAPSING-REMITTING MULTIPLE SCLEROSIS
  3. BETASERON [Suspect]
     Indication: MULTIPLE SCLEROSIS
     Dosage: 8 MIU
     Route: 058
     Dates: start: 20070105, end: 20070331
  4. BETASERON [Suspect]
     Dosage: 8 MIU
     Route: 058
     Dates: start: 20090725
  5. TRILEPTAL [Suspect]
     Indication: CONVULSION
  6. REMERON [Concomitant]
     Indication: DRUG USE FOR UNKNOWN INDICATION
  7. KLONOPIN [Concomitant]
     Indication: DRUG USE FOR UNKNOWN INDICATION

REACTIONS (6)
  - ACUTE LEUKAEMIA [None]
  - ANAEMIA [None]
  - BACK PAIN [None]
  - INTERVERTEBRAL DISC PROTRUSION [None]
  - MULTIPLE SCLEROSIS [None]
  - PAIN IN EXTREMITY [None]
